APPROVED DRUG PRODUCT: TACROLIMUS
Active Ingredient: TACROLIMUS
Strength: EQ 1MG BASE
Dosage Form/Route: CAPSULE;ORAL
Application: A090802 | Product #002 | TE Code: AB
Applicant: PANACEA BIOTEC PHARMA LTD
Approved: Sep 28, 2012 | RLD: No | RS: No | Type: RX